FAERS Safety Report 18096337 (Version 5)
Quarter: 2020Q4

REPORT INFORMATION
  Report Type: Spontaneous
  Country: US (occurrence: US)
  Receive Date: 20200730
  Receipt Date: 20201023
  Transmission Date: 20210113
  Serious: No
  Sender: FDA-Public Use
  Company Number: US-SA-2020SA197188

PATIENT

DRUGS (1)
  1. MULTAQ [Suspect]
     Active Substance: DRONEDARONE
     Indication: ATRIAL FIBRILLATION
     Dosage: 400 MG, BID
     Route: 065
     Dates: start: 20100728

REACTIONS (7)
  - Heart rate increased [Unknown]
  - Product quality issue [Unknown]
  - Feeling abnormal [Unknown]
  - Drug ineffective [Unknown]
  - Symptom recurrence [Unknown]
  - Nervousness [Unknown]
  - Dyspnoea [Unknown]
